FAERS Safety Report 9776253 (Version 2)
Quarter: 2013Q4

REPORT INFORMATION
  Report Type: Spontaneous
  Country: DK (occurrence: DE)
  Receive Date: 20131220
  Receipt Date: 20131230
  Transmission Date: 20140711
  Serious: Yes (Other)
  Sender: FDA-Public Use
  Company Number: DE-FRI-1000052396

PATIENT
  Sex: Male
  Weight: 91 kg

DRUGS (1)
  1. ESCITALOPRAM [Suspect]
     Indication: DEPRESSION
     Dosage: GRADUALLY INCREASED TO 25 MG/DAY
     Route: 048
     Dates: start: 20120220

REACTIONS (3)
  - Pancreatic insufficiency [Unknown]
  - Blood glucose decreased [Unknown]
  - Prescribed overdose [Unknown]
